FAERS Safety Report 23311116 (Version 1)
Quarter: 2023Q4

REPORT INFORMATION
  Report Type: Spontaneous
  Country: US (occurrence: US)
  Receive Date: 20231218
  Receipt Date: 20231218
  Transmission Date: 20240110
  Serious: No
  Sender: FDA-Public Use
  Company Number: US-AMGEN-USASP2023222407

PATIENT
  Sex: Female

DRUGS (1)
  1. REPATHA [Suspect]
     Active Substance: EVOLOCUMAB
     Indication: Blood cholesterol increased
     Dosage: 420 MILLIGRAM, QMO
     Route: 065

REACTIONS (8)
  - Blood glucose increased [Unknown]
  - Blood pressure increased [Unknown]
  - Ear pain [Unknown]
  - Pain in extremity [Unknown]
  - Hypoacusis [Unknown]
  - Jaw disorder [Unknown]
  - Ear disorder [Unknown]
  - Back pain [Unknown]
